FAERS Safety Report 20828708 (Version 5)
Quarter: 2022Q3

REPORT INFORMATION
  Report Type: Report from Study
  Country: US (occurrence: US)
  Receive Date: 20220513
  Receipt Date: 20220905
  Transmission Date: 20221026
  Serious: No
  Sender: FDA-Public Use
  Company Number: US-NOVARTISTESTPH-NVSC2022US111218

PATIENT
  Sex: Female

DRUGS (3)
  1. PIQRAY [Suspect]
     Active Substance: ALPELISIB
     Indication: Product used for unknown indication
     Dosage: UNK
     Route: 048
  2. PIQRAY [Suspect]
     Active Substance: ALPELISIB
     Dosage: 250 MG
     Route: 048
  3. PIQRAY [Suspect]
     Active Substance: ALPELISIB
     Dosage: 200 MG
     Route: 065

REACTIONS (11)
  - Abdominal discomfort [Unknown]
  - Flatulence [Unknown]
  - Pain in extremity [Unknown]
  - Tenderness [Unknown]
  - Gait disturbance [Unknown]
  - Skin irritation [Unknown]
  - Skin exfoliation [Unknown]
  - Blood glucose increased [Unknown]
  - Oedema [Unknown]
  - Pruritus [Unknown]
  - Diarrhoea [Unknown]
